FAERS Safety Report 9799927 (Version 3)
Quarter: 2014Q1

REPORT INFORMATION
  Report Type: Report from Study
  Country: US (occurrence: US)
  Receive Date: 20140106
  Receipt Date: 20140114
  Transmission Date: 20141002
  Serious: Yes (Other)
  Sender: FDA-Public Use
  Company Number: US-US-EMD SERONO, INC.-7197783

PATIENT
  Age: 2 Year
  Sex: Male

DRUGS (2)
  1. SAIZEN [(SOMATROPIN (RDNA ORIGIN) FOR INJECTION)] [Suspect]
     Indication: SMALL FOR DATES BABY
     Route: 058
     Dates: start: 20120507
  2. SAIZEN [(SOMATROPIN (RDNA ORIGIN) FOR INJECTION)] [Suspect]
     Route: 058
     Dates: start: 201302

REACTIONS (8)
  - Sleep apnoea syndrome [Unknown]
  - Snoring [Unknown]
  - Night sweats [Unknown]
  - Joint warmth [Not Recovered/Not Resolved]
  - Insomnia [Unknown]
  - Headache [Not Recovered/Not Resolved]
  - Arthralgia [Not Recovered/Not Resolved]
  - Arthralgia [Not Recovered/Not Resolved]
